FAERS Safety Report 5555998-5 (Version None)
Quarter: 2007Q4

REPORT INFORMATION
  Report Type: 
  Country: None (occurrence: None)
  Receive Date: 20071130
  Receipt Date: 20070726
  Transmission Date: 20080405
  Serious: No
  Sender: FDA-Public Use
  Company Number: US200706003337

PATIENT
  Age: 58 Year
  Sex: Male
  Weight: 111.6 kg

DRUGS (5)
  1. BYETTA [Suspect]
     Indication: TYPE 2 DIABETES MELLITUS
     Dosage: 5 UG, 2/D, SUBCUTANEOUS; 5 UG, 4/D, SUBCUTANEOUS
     Route: 058
     Dates: start: 20070417, end: 20070101
  2. BYETTA [Suspect]
     Indication: TYPE 2 DIABETES MELLITUS
     Dosage: 5 UG, 2/D, SUBCUTANEOUS; 5 UG, 4/D, SUBCUTANEOUS
     Route: 058
     Dates: start: 20070101
  3. AVANDAMET [Concomitant]
  4. GLYBURIDE [Concomitant]
  5. DIOVAN HCT [Concomitant]

REACTIONS (4)
  - BLOOD GLUCOSE DECREASED [None]
  - BLOOD GLUCOSE INCREASED [None]
  - TREMOR [None]
  - WEIGHT DECREASED [None]
